FAERS Safety Report 7846107-8 (Version None)
Quarter: 2011Q4

REPORT INFORMATION
  Report Type: 
  Country: None (occurrence: None)
  Receive Date: 20111025
  Receipt Date: 20111021
  Transmission Date: 20120403
  Serious: Yes (Death, Hospitalization)
  Sender: FDA-Public Use
  Company Number: US-B.I. PHARMACEUTICALS,INC./RIDGEFIELD-2011-BP-24743BP

PATIENT
  Age: 54 Year
  Sex: Male

DRUGS (4)
  1. HEPARIN [Concomitant]
  2. SOTALOL HCL [Concomitant]
  3. GI DRUG [Concomitant]
     Indication: ABDOMINAL DISCOMFORT
  4. PRADAXA [Suspect]
     Indication: ATRIAL FIBRILLATION
     Dosage: 300 MG
     Route: 048

REACTIONS (5)
  - INFLUENZA [None]
  - CARDIAC ABLATION [None]
  - INTRACRANIAL ANEURYSM [None]
  - PNEUMONIA [None]
  - CEREBROVASCULAR ACCIDENT [None]
